FAERS Safety Report 6928776-X (Version None)
Quarter: 2010Q3

REPORT INFORMATION
  Report Type: 
  Country: None (occurrence: None)
  Receive Date: 20100806
  Receipt Date: 20090706
  Transmission Date: 20110219
  Serious: No
  Sender: FDA-Public Use
  Company Number: 2009-00299

PATIENT
  Age: 36 Year
  Sex: Female
  Weight: 122.4712 kg

DRUGS (8)
  1. ZICAM COLD REMEDY GEL SWABS [Suspect]
     Dosage: BID, 1 MONTH
     Dates: start: 20090101, end: 20090201
  2. FLUOXETINE [Concomitant]
  3. EFFEXOR XR [Concomitant]
  4. PREVACID [Concomitant]
  5. ALLEGRA [Concomitant]
  6. ZIAC [Concomitant]
  7. SEROQUEL [Concomitant]
  8. MULTI-VITAMIN [Concomitant]

REACTIONS (3)
  - AGEUSIA [None]
  - ANOSMIA [None]
  - THROAT IRRITATION [None]
